FAERS Safety Report 8664940 (Version 3)
Quarter: 2013Q4

REPORT INFORMATION
  Report Type: Spontaneous
  Country: GB (occurrence: GB)
  Receive Date: 20120713
  Receipt Date: 20131101
  Transmission Date: 20140711
  Serious: No
  Sender: FDA-Public Use
  Company Number: GB-009507513-1207GBR001950

PATIENT
  Age: 35 Year
  Sex: Male

DRUGS (1)
  1. PROPECIA 1MG FILM-COATED TABLET [Suspect]
     Indication: ALOPECIA
     Dosage: 1 MG, QD
     Route: 048
     Dates: start: 201109, end: 20120523

REACTIONS (4)
  - Mental disorder [Not Recovered/Not Resolved]
  - Gynaecomastia [Not Recovered/Not Resolved]
  - Libido decreased [Not Recovered/Not Resolved]
  - Social problem [Not Recovered/Not Resolved]
